FAERS Safety Report 14879703 (Version 1)
Quarter: 2018Q2

REPORT INFORMATION
  Report Type: Report from Study
  Country: US (occurrence: US)
  Receive Date: 20180511
  Receipt Date: 20180511
  Transmission Date: 20180711
  Serious: Yes (Other)
  Sender: FDA-Public Use
  Company Number: US-AUROBINDO-AUR-APL-2018-022375

PATIENT
  Age: 63 Year

DRUGS (2)
  1. PHENYTOIN. [Suspect]
     Active Substance: PHENYTOIN
     Indication: ATAXIA
     Dosage: 26.6 (UNKNOWN UNITS)
     Route: 065
  2. PHENYTOIN. [Suspect]
     Active Substance: PHENYTOIN
     Indication: NYSTAGMUS

REACTIONS (3)
  - Poisoning [Recovering/Resolving]
  - Vestibular disorder [Recovering/Resolving]
  - Overdose [Recovering/Resolving]
